FAERS Safety Report 17107254 (Version 1)
Quarter: 2019Q4

REPORT INFORMATION
  Report Type: Spontaneous
  Country: FR (occurrence: FR)
  Receive Date: 20191203
  Receipt Date: 20191203
  Transmission Date: 20200122
  Serious: Yes (Hospitalization)
  Sender: FDA-Public Use
  Company Number: FR-MYLANLABS-2019M1116187

PATIENT
  Age: 12 Month
  Sex: Female
  Weight: 8.5 kg

DRUGS (2)
  1. ACICLOVIR MYLAN [Suspect]
     Active Substance: ACYCLOVIR
     Indication: VARICELLA
     Dosage: 10 MILLIGRAM/KILOGRAM, Q8H
     Route: 042
     Dates: start: 20190606, end: 20190609
  2. GLUCIDION [Suspect]
     Active Substance: GLUCOSE, LIQUID\POTASSIUM CHLORIDE\SODIUM CHLORIDE
     Indication: DEHYDRATION
     Dosage: 400 MILLIGRAM, QD
     Route: 042
     Dates: start: 20190606, end: 20190609

REACTIONS (3)
  - Injection site oedema [Recovering/Resolving]
  - Cyanosis [Recovered/Resolved]
  - Injection site extravasation [Recovering/Resolving]

NARRATIVE: CASE EVENT DATE: 20190609
